FAERS Safety Report 7217234-3 (Version None)
Quarter: 2010Q4

REPORT INFORMATION
  Report Type: 
  Country: None (occurrence: None)
  Receive Date: 20101230
  Receipt Date: 20101214
  Transmission Date: 20110411
  Serious: Yes (Disabling, Other)
  Sender: FDA-Public Use
  Company Number: ACO_20998_2010

PATIENT
  Age: 60 Year
  Sex: Female
  Weight: 55.8 kg

DRUGS (11)
  1. AMPYRA [Suspect]
     Indication: GAIT DISTURBANCE
     Dosage: 10 MG, BID, ORAL
     Route: 048
     Dates: start: 20101203, end: 20101214
  2. AVONEX [Concomitant]
  3. TRAZODONE (TRAZODONE) [Concomitant]
  4. BACLOFEN [Concomitant]
  5. LISINOPRIL [Concomitant]
  6. DYAZIDE [Concomitant]
  7. SYNTHROID [Concomitant]
  8. PREMARIN [Concomitant]
  9. NALTREXONE HYDROCHLORIDE [Concomitant]
  10. VITAMIN D [Concomitant]
  11. MULTIVITAMIN /00831701/ (VITAMINS NOS) [Concomitant]

REACTIONS (4)
  - ASTHENIA [None]
  - DIZZINESS [None]
  - IMMOBILE [None]
  - INSOMNIA [None]
